FAERS Safety Report 8271673-0 (Version None)
Quarter: 2012Q2

REPORT INFORMATION
  Report Type: 
  Country: None (occurrence: None)
  Receive Date: 20120410
  Receipt Date: 20120405
  Transmission Date: 20120825
  Serious: Yes (Death, Hospitalization)
  Sender: FDA-Public Use
  Company Number: FR-SANOFI-AVENTIS-2012SA023782

PATIENT
  Age: 59 Year
  Sex: Female

DRUGS (11)
  1. LASIX [Suspect]
     Route: 048
     Dates: end: 20120207
  2. AMOXICILLIN [Concomitant]
     Indication: ERYSIPELAS
     Dates: start: 20120101, end: 20120204
  3. QUETIAPINE [Suspect]
     Route: 048
     Dates: start: 20111216, end: 20120207
  4. IBUPROFEN [Suspect]
     Route: 048
     Dates: start: 20120206, end: 20120207
  5. CLONAZEPAM [Suspect]
     Dosage: STRENGTH; 2.5 MG/ML
     Route: 048
     Dates: end: 20120207
  6. NORMACOL [Concomitant]
     Indication: ABDOMINAL DISTENSION
     Route: 054
     Dates: start: 20120207, end: 20120207
  7. ALDACTONE [Suspect]
     Dosage: STRENGTH; 25 MG
     Route: 048
     Dates: end: 20120207
  8. LEPTICUR [Suspect]
     Route: 048
     Dates: start: 20111226, end: 20120207
  9. LOXAPINE HCL [Suspect]
     Route: 048
     Dates: end: 20120207
  10. EXTENCILLINE [Concomitant]
     Indication: ERYSIPELAS
     Dates: start: 20111201
  11. LOVENOX [Concomitant]
     Indication: THROMBOSIS PROPHYLAXIS
     Dates: start: 20120101, end: 20120204

REACTIONS (4)
  - ASTHENIA [None]
  - NAUSEA [None]
  - DYSPNOEA [None]
  - PYREXIA [None]
